FAERS Safety Report 21445564 (Version 1)
Quarter: 2022Q4

REPORT INFORMATION
  Report Type: Other
  Country: None (occurrence: US)
  Receive Date: 20221012
  Receipt Date: 20221012
  Transmission Date: 20230113
  Serious: Yes (Other)
  Sender: FDA-Public Use
  Company Number: US-Alembic Labs LLC-2133743

PATIENT

DRUGS (1)
  1. BENZONATATE [Suspect]
     Active Substance: BENZONATATE
     Indication: Cough
     Route: 048

REACTIONS (7)
  - Cardiac arrest [Unknown]
  - Overdose [Unknown]
  - Electrocardiogram QRS complex prolonged [Unknown]
  - Pulse absent [Unknown]
  - Apnoeic attack [Unknown]
  - Hyperhidrosis [Unknown]
  - Cardiac arrest [Unknown]
